FAERS Safety Report 4643607-9 (Version None)
Quarter: 2005Q2

REPORT INFORMATION
  Report Type: 
  Country: None (occurrence: None)
  Receive Date: 20050425
  Receipt Date: 20050413
  Transmission Date: 20051028
  Serious: Yes (Other)
  Sender: FDA-Public Use
  Company Number: DE-JNJFOC-20050102369

PATIENT
  Sex: Male

DRUGS (5)
  1. HALDOL [Suspect]
     Route: 049
  2. DIPIPERON [Suspect]
     Indication: ACUTE PSYCHOSIS
     Route: 049
  3. TAVOR [Suspect]
     Indication: PANIC ATTACK
     Route: 049
  4. NEUROCIL [Suspect]
     Route: 049
  5. NEUROCIL [Suspect]
     Indication: DRUG USE FOR UNKNOWN INDICATION
     Route: 049

REACTIONS (3)
  - CIRCULATORY COLLAPSE [None]
  - LOSS OF CONSCIOUSNESS [None]
  - PANIC DISORDER [None]
